FAERS Safety Report 5710411-X (Version None)
Quarter: 2008Q2

REPORT INFORMATION
  Report Type: 
  Country: None (occurrence: None)
  Receive Date: 20080418
  Receipt Date: 20080408
  Transmission Date: 20081010
  Serious: Yes (Hospitalization, Other)
  Sender: FDA-Public Use
  Company Number: US-PFIZER INC-2008032274

PATIENT
  Age: 42 Year
  Sex: Male
  Weight: 77.1 kg

DRUGS (8)
  1. CHANTIX [Suspect]
     Indication: SMOKING CESSATION THERAPY
     Dates: start: 20080315, end: 20080401
  2. OXYCODONE HCL [Concomitant]
  3. LASIX [Concomitant]
  4. IMDUR [Concomitant]
  5. NITROGLYCERIN [Concomitant]
  6. POTASSIUM CHLORIDE [Concomitant]
  7. LISINOPRIL [Concomitant]
  8. DURAGESIC-100 [Concomitant]

REACTIONS (5)
  - BLOOD PRESSURE INCREASED [None]
  - DEHYDRATION [None]
  - NAUSEA [None]
  - RENAL FAILURE ACUTE [None]
  - SWELLING [None]
